FAERS Safety Report 18604482 (Version 13)
Quarter: 2021Q2

REPORT INFORMATION
  Report Type: Spontaneous
  Country: CZ (occurrence: CZ)
  Receive Date: 20201211
  Receipt Date: 20210630
  Transmission Date: 20210717
  Serious: Yes (Hospitalization, Other)
  Sender: FDA-Public Use
  Company Number: CZ-AUROBINDO-AUR-APL-2020-060296

PATIENT
  Age: 85 Year
  Sex: Female

DRUGS (62)
  1. PANTOPRAZOLE GASTRO?RESISTANT TABLET [Suspect]
     Active Substance: PANTOPRAZOLE SODIUM
     Indication: PRODUCT USED FOR UNKNOWN INDICATION
     Dosage: 20 MILLIGRAM, ONCE A DAY
     Route: 048
  2. FENTANYL. [Suspect]
     Active Substance: FENTANYL
     Indication: PRODUCT USED FOR UNKNOWN INDICATION
     Dosage: UNK 25 UG/H EVERY 72 HODIN
     Route: 062
     Dates: start: 2015
  3. PREDNISON LECIVA [Suspect]
     Active Substance: PREDNISONE
     Indication: STEROID THERAPY
     Dosage: 5 MILLIGRAM, ONCE A DAY
     Route: 048
  4. TEZEO HCT [Suspect]
     Active Substance: HYDROCHLOROTHIAZIDE\TELMISARTAN
     Indication: PRODUCT USED FOR UNKNOWN INDICATION
     Dosage: 1 DOSAGE FORM, ONCE A DAY (1?0?0; 12.5 MG/80 MG)
     Route: 048
  5. SODIUM PICOSULFATE [Suspect]
     Active Substance: SODIUM PICOSULFATE
     Dosage: 1 DOSAGE FORM
     Route: 065
  6. PARACETAMOL TABLET [Suspect]
     Active Substance: ACETAMINOPHEN
     Dosage: 750 MILLIGRAM, ONCE A DAY (1.5 TABLETS 3?4 TIMES A DAY)
     Route: 048
     Dates: start: 2015
  7. PREGABALINE [Suspect]
     Active Substance: PREGABALIN
     Indication: PRODUCT USED FOR UNKNOWN INDICATION
     Dosage: UNK
     Route: 065
  8. AMIODARONE [Suspect]
     Active Substance: AMIODARONE
     Dosage: 200 MILLIGRAM
     Route: 048
  9. DUROGESIC [Suspect]
     Active Substance: FENTANYL
     Indication: PAIN
     Dosage: UNK (DOSE REDUCED TO ONE HALF)
     Route: 065
  10. GUAJACURAN [Suspect]
     Active Substance: GUAIFENESIN
     Indication: PRODUCT USED FOR UNKNOWN INDICATION
     Dosage: UNK
     Route: 065
  11. EUTHYROX [Suspect]
     Active Substance: LEVOTHYROXINE SODIUM
     Indication: AUTOIMMUNE THYROIDITIS
     Dosage: 100 MICROGRAM, EVERY WEEK
     Route: 048
  12. METHOTREXATE. [Suspect]
     Active Substance: METHOTREXATE
     Dosage: 10 MILLIGRAM, ONCE A DAY, (1?0?0, SUNDAY)
     Route: 065
  13. SODIUM PICOSULFATE [Suspect]
     Active Substance: SODIUM PICOSULFATE
     Indication: CONSTIPATION
     Dosage: UNK
     Route: 065
  14. METOPROLOL. [Concomitant]
     Active Substance: METOPROLOL
     Indication: PRODUCT USED FOR UNKNOWN INDICATION
     Dosage: 25 MILLIGRAM, ONCE A DAY
     Route: 048
  15. IBUPROFEN. [Suspect]
     Active Substance: IBUPROFEN
     Indication: PAIN
     Dosage: UNK
     Route: 065
  16. ACIDUM FOLICUM [Suspect]
     Active Substance: FOLIC ACID
     Dosage: UNK, ONCE A DAY, (QD (TBL. 1?0?0 (MONDAY)))
     Route: 065
  17. CARDILAN [ALLIUM SATIVUM OIL/CRATAEGUS SPP. EXTRACT/GINKGO BILOBA EXTRACT/MELISSA OFFICINALIS EXTRACT] [Suspect]
     Active Substance: HERBALS
     Indication: PRODUCT USED FOR UNKNOWN INDICATION
     Dosage: UNK, ONCE A DAY, QD
     Route: 065
  18. CARDILAN [MAGNESIUM ASPARTATE/POTASSIUM ASPARTATE] [Suspect]
     Active Substance: MAGNESIUM ASPARTATE\POTASSIUM ASPARTATE
     Indication: PRODUCT USED FOR UNKNOWN INDICATION
     Dosage: 1 DOSAGE FORM, ONCE A DAY
     Route: 048
  19. CORDARONE [Suspect]
     Active Substance: AMIODARONE HYDROCHLORIDE
     Indication: PRODUCT USED FOR UNKNOWN INDICATION
     Dosage: 200 MILLIGRAM, ONCE A DAY
     Route: 048
  20. CALCICHEW D3 [Suspect]
     Active Substance: CALCIUM\CHOLECALCIFEROL
     Indication: CALCIUM DEFICIENCY
     Dosage: 1 DOSAGE FORM, ONCE A DAY
     Route: 048
  21. CAPTOPRIL. [Suspect]
     Active Substance: CAPTOPRIL
     Indication: HYPERTENSION
     Dosage: UNK
     Route: 065
  22. NOVALGIN (METAMIZOLE SODIUM) [Suspect]
     Active Substance: METAMIZOLE SODIUM
     Indication: PRODUCT USED FOR UNKNOWN INDICATION
     Dosage: UNK, TWO TIMES A DAY, (BID (500 MG TBL))
     Route: 065
  23. PREDNISON LECIVA [Suspect]
     Active Substance: PREDNISONE
     Dosage: UNK, ONCE A DAY, (1?0?0)
     Route: 065
  24. TRAZODONE [Suspect]
     Active Substance: TRAZODONE HYDROCHLORIDE
     Indication: PRODUCT USED FOR UNKNOWN INDICATION
     Dosage: UNK
     Route: 065
  25. AMLODIPINE [Suspect]
     Active Substance: AMLODIPINE BESYLATE
     Indication: HYPERTENSION
     Dosage: UNK
     Route: 065
  26. APIXABAN FILM COATED TABLET [Suspect]
     Active Substance: APIXABAN
     Indication: ANTICOAGULANT THERAPY
     Dosage: 5 MILLIGRAM, DAILY (1?0?1 )
     Route: 048
  27. ROSUVASTATIN. [Suspect]
     Active Substance: ROSUVASTATIN
     Indication: PRODUCT USED FOR UNKNOWN INDICATION
     Dosage: UNK
     Route: 048
  28. EUTHYROX [Suspect]
     Active Substance: LEVOTHYROXINE SODIUM
     Dosage: UNK, ONCE A DAY, (1?0?0, FASTING, EXCEPT SUNDAYS)
     Route: 065
  29. EUTHYROX [Suspect]
     Active Substance: LEVOTHYROXINE SODIUM
     Dosage: UNK, ONCE A DAY
     Route: 065
  30. METAMIZOL [Suspect]
     Active Substance: METAMIZOLE SODIUM
     Indication: HYPERTENSION
     Dosage: UNK
     Route: 065
  31. PREDNISON LECIVA [Suspect]
     Active Substance: PREDNISONE
     Dosage: UNK, ONCE A DAY, (2?0?0)
     Route: 065
  32. TELMISARTAN. [Suspect]
     Active Substance: TELMISARTAN
     Indication: HYPERTENSION
     Dosage: UNK, ONCE A DAY (80/12.5 MG TBL)
     Route: 065
  33. PREGABALIN. [Concomitant]
     Active Substance: PREGABALIN
     Indication: POST HERPETIC NEURALGIA
     Dosage: UNK
     Route: 048
  34. OMEPRAZOLE. [Suspect]
     Active Substance: OMEPRAZOLE
     Indication: PRODUCT USED FOR UNKNOWN INDICATION
     Dosage: UNK
     Route: 065
  35. RAMIPRIL. [Suspect]
     Active Substance: RAMIPRIL
     Indication: PRODUCT USED FOR UNKNOWN INDICATION
     Dosage: UNK
     Route: 065
  36. AMIODARONE [Suspect]
     Active Substance: AMIODARONE
     Indication: PRODUCT USED FOR UNKNOWN INDICATION
     Dosage: UNK
     Route: 065
  37. GUTTALAX [SODIUM PICOSULFATE] [Suspect]
     Active Substance: SODIUM PICOSULFATE
     Indication: CONSTIPATION
     Dosage: UNK (10?20 GTT IN THE EVENING) SYRUP
     Route: 048
  38. METAMIZOL [Suspect]
     Active Substance: METAMIZOLE SODIUM
     Dosage: 500 MILLIGRAM
     Route: 048
  39. HYPNOGEN [Suspect]
     Active Substance: ZOLPIDEM TARTRATE
     Indication: DRUG ABUSE
     Dosage: UNK
     Route: 065
  40. ALPRAZOLAM. [Suspect]
     Active Substance: ALPRAZOLAM
     Indication: PRODUCT USED FOR UNKNOWN INDICATION
     Dosage: UNK
     Route: 065
  41. METOPROLOL. [Suspect]
     Active Substance: METOPROLOL
     Indication: PRODUCT USED FOR UNKNOWN INDICATION
     Dosage: 25 MILLIGRAM, ONCE A DAY
     Route: 065
  42. TRAMADOL. [Suspect]
     Active Substance: TRAMADOL
     Indication: PRODUCT USED FOR UNKNOWN INDICATION
     Dosage: UNK
     Route: 065
  43. ZOLPIDEM [Suspect]
     Active Substance: ZOLPIDEM TARTRATE
     Indication: PRODUCT USED FOR UNKNOWN INDICATION
     Dosage: UNK
     Route: 065
  44. ACIDUM FOLICUM [Suspect]
     Active Substance: FOLIC ACID
     Indication: PRODUCT USED FOR UNKNOWN INDICATION
     Dosage: 1 DOSAGE FORM, EVERY WEEK
     Route: 048
  45. MELOXICAM. [Suspect]
     Active Substance: MELOXICAM
     Indication: PAIN
     Dosage: 15 MILLIGRAM, EVERY WEEK 1 TBL IF PAIN, APP. 3 TIMES A WEEK)
     Route: 048
     Dates: start: 2015
  46. NOVALGIN (METAMIZOLE SODIUM) [Suspect]
     Active Substance: METAMIZOLE SODIUM
     Dosage: UNK
     Route: 065
  47. POTASSIUM ASPARTATE [Suspect]
     Active Substance: POTASSIUM ASPARTATE
     Indication: PRODUCT USED FOR UNKNOWN INDICATION
     Dosage: UNK
     Route: 065
  48. PARACETAMOL TABLET [Suspect]
     Active Substance: ACETAMINOPHEN
     Indication: PAIN
     Dosage: 500 MILLIGRAM, (1.5 TBL. 3?4 TIMES DAILY)
     Route: 065
  49. EUTHYROX [Suspect]
     Active Substance: LEVOTHYROXINE SODIUM
     Indication: AUTOIMMUNE THYROIDITIS
     Dosage: 100 MICROGRAM, ONCE A DAY
     Route: 048
  50. MELOXICAM. [Suspect]
     Active Substance: MELOXICAM
     Dosage: 1 DOSAGE FORM
     Route: 065
  51. METHOTREXATE. [Suspect]
     Active Substance: METHOTREXATE
     Indication: RHEUMATOID ARTHRITIS
     Dosage: 10 MILLIGRAM, EVERY WEEK
     Route: 048
  52. ROSUCARD [Suspect]
     Active Substance: ROSUVASTATIN CALCIUM
     Indication: PRODUCT USED FOR UNKNOWN INDICATION
     Dosage: 20 MILLIGRAM, ONCE A DAY
     Route: 048
  53. DUROGESIC [Suspect]
     Active Substance: FENTANYL
     Indication: PRODUCT USED FOR UNKNOWN INDICATION
     Dosage: UNK
     Route: 065
  54. CALCIUM [Concomitant]
     Active Substance: CALCIUM
     Indication: PRODUCT USED FOR UNKNOWN INDICATION
     Dosage: 1 DOSAGE FORM, ONCE A DAY
     Route: 048
  55. APIXABAN FILM COATED TABLET [Suspect]
     Active Substance: APIXABAN
     Dosage: 5 MILLIGRAM, TWO TIMES A DAY
     Route: 048
  56. DONEPEZIL. [Suspect]
     Active Substance: DONEPEZIL
     Indication: PRODUCT USED FOR UNKNOWN INDICATION
     Dosage: UNK
     Route: 065
  57. AGEN [Suspect]
     Active Substance: AMLODIPINE BESYLATE
     Indication: PRODUCT USED FOR UNKNOWN INDICATION
     Dosage: 5 MILLIGRAM, ONCE A DAY
     Route: 048
  58. CONDROSULF [Suspect]
     Active Substance: SODIUM CHONDROITIN SULFATE
     Indication: PRODUCT USED FOR UNKNOWN INDICATION
     Dosage: 800 MILLIGRAM, ONCE A DAY, (0?0?1) IN THE EVENING
     Route: 048
  59. DUROGESIC [Suspect]
     Active Substance: FENTANYL
     Dosage: 25 MICROGRAM, EVERY HOUR, (EVERY 72 HOURS)
     Route: 062
     Dates: start: 2015
  60. NOVALGIN (METAMIZOLE SODIUM) [Suspect]
     Active Substance: METAMIZOLE SODIUM
     Dosage: 500 MILLIGRAM, ONCE A DAY
     Route: 048
     Dates: start: 2015
  61. NICOFURANOSE. [Suspect]
     Active Substance: NICOFURANOSE
     Indication: ENCEPHALOPATHY
     Dosage: UNK, ONCE A DAY
     Route: 065
  62. MAGNESIUM ASPARTATE [Suspect]
     Active Substance: MAGNESIUM ASPARTATE
     Indication: PRODUCT USED FOR UNKNOWN INDICATION
     Dosage: UNK
     Route: 065

REACTIONS (35)
  - Delirium [Recovered/Resolved]
  - Urinary retention [Recovered/Resolved]
  - Listless [Recovering/Resolving]
  - Atrial fibrillation [Recovered/Resolved]
  - Discomfort [Recovered/Resolved]
  - Drug interaction [Recovered/Resolved]
  - General physical health deterioration [Recovering/Resolving]
  - Fall [Recovering/Resolving]
  - Hepatic enzyme increased [Recovered/Resolved]
  - Nausea [Recovered/Resolved]
  - Apathy [Recovered/Resolved]
  - Condition aggravated [Recovered/Resolved]
  - Hypertension [Recovered/Resolved]
  - Reduced facial expression [Recovered/Resolved]
  - Loss of personal independence in daily activities [Recovered/Resolved]
  - Cognitive disorder [Recovered/Resolved]
  - Liver function test abnormal [Unknown]
  - Encephalopathy [Recovering/Resolving]
  - Dehydration [Recovered/Resolved]
  - Hypokalaemia [Recovered/Resolved]
  - Affect lability [Recovered/Resolved]
  - Mobility decreased [Recovered/Resolved]
  - Hyponatraemia [Recovered/Resolved]
  - Multiple drug therapy [Recovered/Resolved]
  - Vertigo [Recovered/Resolved]
  - Head discomfort [Recovered/Resolved]
  - Confusional state [Unknown]
  - Anxiety [Recovered/Resolved]
  - Bedridden [Recovered/Resolved]
  - Medication error [Recovered/Resolved]
  - Immobile [Recovered/Resolved]
  - Cerebral atrophy [Recovered/Resolved]
  - Oxygen saturation decreased [Recovered/Resolved]
  - Liver function test increased [Recovered/Resolved]
  - Incorrect dose administered [Unknown]

NARRATIVE: CASE EVENT DATE: 2018
